FAERS Safety Report 9759588 (Version 1)
Quarter: 2013Q4

REPORT INFORMATION
  Report Type: Spontaneous
  Country: US (occurrence: US)
  Receive Date: 20131216
  Receipt Date: 20131216
  Transmission Date: 20140711
  Serious: No
  Sender: FDA-Public Use
  Company Number: US-GILEAD-2010-0028139

PATIENT
  Sex: Female
  Weight: 53.07 kg

DRUGS (29)
  1. LETAIRIS [Suspect]
     Indication: PULMONARY ARTERIAL HYPERTENSION
     Route: 048
     Dates: start: 20081006
  2. CELLCEPT [Concomitant]
  3. GAVISCON [Concomitant]
  4. MYCOPHENOLATE [Concomitant]
  5. NORCO [Concomitant]
  6. CRESTOR [Concomitant]
  7. PREVACID [Concomitant]
  8. FUROSEMIDE [Concomitant]
  9. SLOW FE [Concomitant]
  10. KLOR-CON [Concomitant]
  11. XYZAL [Concomitant]
  12. VIVELLE [Concomitant]
  13. CENTRUM SILVER [Concomitant]
  14. BONIVA [Concomitant]
  15. SINGULAIR [Concomitant]
  16. COZAAR [Concomitant]
  17. ZOLOFT [Concomitant]
  18. METHOTREXATE [Concomitant]
  19. PREDNISONE [Concomitant]
  20. SYNTHROID [Concomitant]
  21. CLARINEX [Concomitant]
  22. FOLIC ACID [Concomitant]
  23. CALCIUM [Concomitant]
  24. GLUCOSAMINE [Concomitant]
  25. B-COMPLEX [Concomitant]
  26. ASPIRIN [Concomitant]
  27. ZETIA [Concomitant]
  28. VITAMIN D [Concomitant]
  29. TRIGLIDE [Concomitant]

REACTIONS (1)
  - Hair growth abnormal [Unknown]
